FAERS Safety Report 4672998-8 (Version None)
Quarter: 2005Q2

REPORT INFORMATION
  Report Type: 
  Country: None (occurrence: None)
  Receive Date: 20050523
  Receipt Date: 20050509
  Transmission Date: 20051028
  Serious: Yes (Other)
  Sender: FDA-Public Use
  Company Number: 2004020071

PATIENT
  Sex: Female
  Weight: 61.2356 kg

DRUGS (4)
  1. PHENYTOIN SODIUM [Suspect]
     Indication: CONVULSION
     Dosage: 300 MG (100 MG, 3 IN 1 D), ORAL
     Route: 048
     Dates: start: 19730101
  2. MONTELUKAST (MONTELUKAST) [Concomitant]
  3. DIPHENHYDRAMINE HCL [Concomitant]
  4. IBUPROFEN [Concomitant]

REACTIONS (21)
  - ANAPHYLACTIC REACTION [None]
  - BLOOD GLUCOSE DECREASED [None]
  - CHEST PAIN [None]
  - DEPRESSED LEVEL OF CONSCIOUSNESS [None]
  - DIZZINESS [None]
  - DRUG INTOLERANCE [None]
  - DRUG LEVEL DECREASED [None]
  - DRUG TOXICITY [None]
  - DYSGEUSIA [None]
  - DYSPNOEA [None]
  - HEADACHE [None]
  - HYPOTHYROIDISM [None]
  - LIP BLISTER [None]
  - PHARMACEUTICAL PRODUCT COMPLAINT [None]
  - REACTION TO MEDICAL AGENT PRESERVATIVES [None]
  - RESPIRATORY DISTRESS [None]
  - SKIN DISCOLOURATION [None]
  - SWELLING FACE [None]
  - TACHYCARDIA [None]
  - THROAT TIGHTNESS [None]
  - VERTIGO [None]
